FAERS Safety Report 4338746-6 (Version None)
Quarter: 2004Q2

REPORT INFORMATION
  Report Type: 
  Country: None (occurrence: None)
  Receive Date: 20040409
  Receipt Date: 20040318
  Transmission Date: 20050107
  Serious: No
  Sender: FDA-Public Use
  Company Number: 200414733BWH

PATIENT
  Age: 61 Year
  Sex: Male
  Weight: 76.6579 kg

DRUGS (8)
  1. LEVITRA [Suspect]
     Indication: ORGANIC ERECTILE DYSFUNCTION
     Dosage: 10 MG, PRN, ORAL 20 MG, PRN, ORAL
     Route: 048
     Dates: start: 20031230
  2. LEVITRA [Suspect]
     Indication: ORGANIC ERECTILE DYSFUNCTION
     Dosage: 10 MG, PRN, ORAL 20 MG, PRN, ORAL
     Route: 048
     Dates: start: 20040102
  3. LEVITRA [Suspect]
     Indication: ORGANIC ERECTILE DYSFUNCTION
     Dosage: 10 MG, PRN, ORAL 20 MG, PRN, ORAL
     Route: 048
     Dates: start: 20040103
  4. LEVITRA [Suspect]
     Indication: ORGANIC ERECTILE DYSFUNCTION
     Dosage: 10 MG, PRN, ORAL 20 MG, PRN, ORAL
     Route: 048
     Dates: start: 20040107
  5. LEVITRA [Suspect]
     Indication: ORGANIC ERECTILE DYSFUNCTION
     Dosage: 10 MG, PRN, ORAL 20 MG, PRN, ORAL
     Route: 048
     Dates: start: 20040108
  6. LEVITRA [Suspect]
     Indication: ORGANIC ERECTILE DYSFUNCTION
     Dosage: 10 MG, PRN, ORAL 20 MG, PRN, ORAL
     Route: 048
     Dates: start: 20040113
  7. LEVITRA [Suspect]
     Indication: ORGANIC ERECTILE DYSFUNCTION
     Dosage: 10 MG, PRN, ORAL 20 MG, PRN, ORAL
     Route: 048
     Dates: start: 20040225
  8. BENICAR /USA/ [Concomitant]

REACTIONS (5)
  - BLOOD PRESSURE INCREASED [None]
  - DIZZINESS [None]
  - DYSPHORIA [None]
  - GASTRITIS [None]
  - SCOTOMA [None]
